FAERS Safety Report 9462257 (Version 1)
Quarter: 2013Q3

REPORT INFORMATION
  Report Type: Spontaneous
  Country: US (occurrence: None)
  Receive Date: 20130813
  Receipt Date: 20130813
  Transmission Date: 20140515
  Serious: Yes (Disabling, Other)
  Sender: FDA-Public Use
  Company Number: 1308-1020

PATIENT
  Age: 64 Year
  Sex: Female

DRUGS (1)
  1. EYLEA (AFLIBERCEPT) (INJECTION) (AFLIBERCEPT) [Suspect]
     Indication: AGE-RELATED MACULAR DEGENERATION
     Dosage: INTRAVITREAL
     Dates: end: 20130723

REACTIONS (5)
  - Endophthalmitis [None]
  - Hypopyon [None]
  - Visual acuity reduced [None]
  - Cataract [None]
  - Eye infection staphylococcal [None]
